FAERS Safety Report 17454764 (Version 1)
Quarter: 2020Q1

REPORT INFORMATION
  Report Type: Report from Study
  Country: US (occurrence: US)
  Receive Date: 20200225
  Receipt Date: 20200225
  Transmission Date: 20200409
  Serious: Yes (Other)
  Sender: FDA-Public Use
  Company Number: US-ROCHE-2549031

PATIENT
  Sex: Female

DRUGS (1)
  1. ACTEMRA [Suspect]
     Active Substance: TOCILIZUMAB
     Indication: ILL-DEFINED DISORDER
     Dosage: INJECT 162MG SUBCUTANEOUSLY EVERY OTHER WEEK
     Route: 058

REACTIONS (3)
  - White blood cell count increased [Unknown]
  - Atrial fibrillation [Unknown]
  - Platelet count increased [Unknown]
